FAERS Safety Report 6272587-8 (Version None)
Quarter: 2009Q3

REPORT INFORMATION
  Report Type: 
  Country: None (occurrence: None)
  Receive Date: 20090717
  Receipt Date: 20090710
  Transmission Date: 20100115
  Serious: Yes (Death, Other)
  Sender: FDA-Public Use
  Company Number: ES-CELGENEUS-144-50794-09041711

PATIENT
  Sex: Male
  Weight: 66 kg

DRUGS (8)
  1. VIDAZA [Suspect]
     Indication: MYELODYSPLASTIC SYNDROME
     Route: 058
     Dates: start: 20081218
  2. VIDAZA [Suspect]
     Route: 058
     Dates: start: 20090115, end: 20090120
  3. MORPHINE [Concomitant]
     Route: 051
     Dates: start: 20081218
  4. PIPERACILLIN [Concomitant]
     Route: 065
     Dates: start: 20090108
  5. TAZOBACTAM [Concomitant]
     Route: 065
     Dates: start: 20090108
  6. TEICOPLANIN [Concomitant]
     Route: 051
     Dates: start: 20090113
  7. ACYCLOVIR [Concomitant]
     Route: 048
  8. HALOPERIDOL [Concomitant]
     Indication: AGITATION
     Route: 065
     Dates: start: 20090118

REACTIONS (3)
  - BONE MARROW FAILURE [None]
  - HEPATOTOXICITY [None]
  - SEPSIS [None]
